FAERS Safety Report 9398369 (Version 2)
Quarter: 2013Q3

REPORT INFORMATION
  Report Type: Spontaneous
  Country: US (occurrence: US)
  Receive Date: 20130712
  Receipt Date: 20130823
  Transmission Date: 20140515
  Serious: No
  Sender: FDA-Public Use
  Company Number: US-009507513-1306USA013681

PATIENT
  Sex: Female
  Weight: 99.59 kg

DRUGS (3)
  1. IMPLANON [Suspect]
     Indication: CONTRACEPTION
     Dosage: 68 MG, UNK
     Route: 059
     Dates: start: 20120110
  2. ALBUTEROL [Concomitant]
  3. IMITREX (SUMATRIPTAN) [Concomitant]

REACTIONS (7)
  - Gastrooesophageal reflux disease [Unknown]
  - Device dislocation [Unknown]
  - Implant site pain [Unknown]
  - Fatigue [Unknown]
  - Implant site inflammation [Unknown]
  - Abdominal distension [Unknown]
  - Abdominal pain [Unknown]
